FAERS Safety Report 23887033 (Version 1)
Quarter: 2024Q2

REPORT INFORMATION
  Report Type: Spontaneous
  Country: FI (occurrence: FI)
  Receive Date: 20240523
  Receipt Date: 20240523
  Transmission Date: 20240716
  Serious: Yes (Disabling)
  Sender: FDA-Public Use
  Company Number: FI-AUROBINDO-AUR-APL-2024-024605

PATIENT
  Age: 37 Year
  Sex: Male

DRUGS (1)
  1. OLANZAPINE [Suspect]
     Active Substance: OLANZAPINE
     Indication: Psychotic disorder
     Dosage: 3 DOSAGE FORM, ONCE A DAY
     Route: 065
     Dates: start: 201302

REACTIONS (8)
  - Fatigue [Recovered/Resolved]
  - Paranoia [Recovered/Resolved]
  - Withdrawal syndrome [Recovered/Resolved]
  - Coordination abnormal [Recovered/Resolved]
  - Therapeutic response changed [Recovered/Resolved]
  - Impaired driving ability [Recovered/Resolved]
  - Product complaint [Recovered/Resolved]
  - Product quality issue [Recovered/Resolved]

NARRATIVE: CASE EVENT DATE: 20240410
